FAERS Safety Report 19519519 (Version 1)
Quarter: 2021Q3

REPORT INFORMATION
  Report Type: Spontaneous
  Country: US (occurrence: US)
  Receive Date: 20210712
  Receipt Date: 20210712
  Transmission Date: 20211014
  Serious: Yes (Other)
  Sender: FDA-Public Use
  Company Number: US-PFIZER INC-2021823039

PATIENT
  Age: 53 Year

DRUGS (1)
  1. ESTRING [Suspect]
     Active Substance: ESTRADIOL

REACTIONS (2)
  - Neoplasm malignant [Unknown]
  - Malaise [Unknown]
